FAERS Safety Report 7971759-1 (Version None)
Quarter: 2011Q4

REPORT INFORMATION
  Report Type: 
  Country: None (occurrence: None)
  Receive Date: 20111212
  Receipt Date: 20111129
  Transmission Date: 20120403
  Serious: Yes (Other)
  Sender: FDA-Public Use
  Company Number: GB-MYLANLABS-2011S1024645

PATIENT

DRUGS (1)
  1. ROPINIROLE [Suspect]
     Indication: PARKINSON'S DISEASE

REACTIONS (3)
  - DRUG INEFFECTIVE [None]
  - PARKINSON'S DISEASE [None]
  - DRUG LEVEL FLUCTUATING [None]
